FAERS Safety Report 21029483 (Version 2)
Quarter: 2022Q3

REPORT INFORMATION
  Report Type: Spontaneous
  Country: FR (occurrence: FR)
  Receive Date: 20220630
  Receipt Date: 20220705
  Transmission Date: 20221027
  Serious: Yes (Hospitalization)
  Sender: FDA-Public Use
  Company Number: FR-TEVA-2022-FR-2049769

PATIENT
  Age: 15 Year
  Sex: Male

DRUGS (7)
  1. PREDNISONE [Suspect]
     Active Substance: PREDNISONE
     Indication: Nephrotic syndrome
     Dosage: 12.5 MILLIGRAM DAILY;
     Route: 065
     Dates: start: 201802
  2. PREDNISONE [Suspect]
     Active Substance: PREDNISONE
     Dosage: 2.5 MILLIGRAM DAILY; ON ALTERNATE DAYS
     Route: 065
     Dates: start: 201806
  3. LEVAMISOLE [Suspect]
     Active Substance: LEVAMISOLE
     Indication: Nephrotic syndrome
     Dosage: 2 MG/KG ON ALTERNATE DAYS (THREE TIMES A WEEK)
     Route: 065
     Dates: start: 201206
  4. LEVAMISOLE [Suspect]
     Active Substance: LEVAMISOLE
     Dosage: ON ALTERNATE DAYS
     Route: 065
     Dates: start: 201802
  5. LEVAMISOLE [Suspect]
     Active Substance: LEVAMISOLE
     Route: 065
     Dates: start: 201806
  6. PFIZER-BIONTECH COVID-19 VACCINE [Suspect]
     Active Substance: TOZINAMERAN
     Indication: COVID-19 immunisation
     Dosage: FIRST DOSE
     Route: 065
     Dates: start: 202108
  7. PFIZER-BIONTECH COVID-19 VACCINE [Suspect]
     Active Substance: TOZINAMERAN
     Dosage: SECOND DOSE
     Route: 065
     Dates: start: 20210911

REACTIONS (2)
  - Anti-neutrophil cytoplasmic antibody positive vasculitis [Recovering/Resolving]
  - Acne [Unknown]

NARRATIVE: CASE EVENT DATE: 20210101
